FAERS Safety Report 6684404-2 (Version None)
Quarter: 2010Q2

REPORT INFORMATION
  Report Type: 
  Country: None (occurrence: None)
  Receive Date: 20100416
  Receipt Date: 20100408
  Transmission Date: 20101027
  Serious: Yes (Death)
  Sender: FDA-Public Use
  Company Number: GR-MILLENNIUM PHARMACEUTICALS, INC.-2010-02080

PATIENT

DRUGS (1)
  1. VELCADE [Suspect]
     Indication: AMYLOIDOSIS

REACTIONS (1)
  - DISEASE COMPLICATION [None]
